FAERS Safety Report 5085730-3 (Version None)
Quarter: 2006Q3

REPORT INFORMATION
  Report Type: 
  Country: None (occurrence: None)
  Receive Date: 20060817
  Receipt Date: 20060609
  Transmission Date: 20061208
  Serious: Yes (Other)
  Sender: FDA-Public Use
  Company Number: 2006056747

PATIENT
  Age: 54 Year
  Sex: Female

DRUGS (1)
  1. BEXTRA [Suspect]
     Indication: RHEUMATOID ARTHRITIS
     Dosage: 20 MG (10 MG, 2 IN 1 D)
     Dates: start: 20041001

REACTIONS (9)
  - DERMATITIS [None]
  - DISCOMFORT [None]
  - DRUG ERUPTION [None]
  - PAIN OF SKIN [None]
  - PRURITUS [None]
  - RASH ERYTHEMATOUS [None]
  - SKIN BURNING SENSATION [None]
  - SLEEP DISORDER [None]
  - URTICARIA [None]
